FAERS Safety Report 8657731 (Version 2)
Quarter: 2012Q4

REPORT INFORMATION
  Report Type: 
  Country: JP (occurrence: JP)
  Receive Date: 20120710
  Receipt Date: 20120928
  Transmission Date: 20130627
  Serious: Yes (Hospitalization, Other)
  Sender: FDA-Public Use
  Company Number: JP-ASTELLAS-2012US006025

PATIENT
  Age: 65 Year
  Sex: Female
  Weight: 52 kg

DRUGS (11)
  1. TARCEVA [Suspect]
     Indication: ADENOCARCINOMA PANCREAS
     Dosage: 100 mg, UID/QD
     Route: 048
     Dates: start: 20110930, end: 20111209
  2. GEMZAR [Suspect]
     Indication: ADENOCARCINOMA PANCREAS
     Dosage: 1000 mg/m2, Weekly
     Route: 042
     Dates: start: 20110930, end: 20111007
  3. GEMZAR [Suspect]
     Dosage: 1000 mg/m2, Weekly
     Route: 042
     Dates: start: 20111024, end: 20111031
  4. GEMZAR [Suspect]
     Dosage: 1000 mg/m2, Weekly
     Route: 042
     Dates: start: 20111114, end: 20111128
  5. MAGMITT [Concomitant]
     Indication: PRODUCT USED FOR UNKNOWN INDICATION
     Dosage: 1.5 g, UID/QD
     Route: 048
     Dates: start: 20111004
  6. SENNOSIDE                          /00571901/ [Concomitant]
     Indication: PRODUCT USED FOR UNKNOWN INDICATION
     Dosage: 24 mg, Unknown/D
     Route: 048
  7. LOXOPROFEN [Concomitant]
     Indication: PRODUCT USED FOR UNKNOWN INDICATION
     Dosage: 60 mg, Unknown/D
     Route: 048
     Dates: start: 20111004
  8. PARIET [Concomitant]
     Indication: PRODUCT USED FOR UNKNOWN INDICATION
     Dosage: 10 mg, UID/QD
     Route: 048
  9. REBAMIPIDE [Concomitant]
     Indication: PRODUCT USED FOR UNKNOWN INDICATION
     Dosage: 300 mg, UID/QD
     Route: 048
  10. GOODMIN [Concomitant]
     Indication: PRODUCT USED FOR UNKNOWN INDICATION
     Dosage: 0.25 mg, Total Dose
     Route: 048
  11. CRAVIT [Concomitant]
     Indication: PRODUCT USED FOR UNKNOWN INDICATION
     Dosage: 500 mg, UID/QD
     Route: 048
     Dates: start: 20111206, end: 20111208

REACTIONS (12)
  - Interstitial lung disease [Recovered/Resolved]
  - Dermatitis acneiform [Not Recovered/Not Resolved]
  - Diarrhoea [Recovered/Resolved]
  - Stomatitis [Recovered/Resolved]
  - Paronychia [Recovered/Resolved]
  - Decreased appetite [Recovered/Resolved]
  - Pyrexia [Recovered/Resolved]
  - Alanine aminotransferase increased [Recovered/Resolved]
  - Aspartate aminotransferase increased [Recovered/Resolved]
  - White blood cell count decreased [Recovered/Resolved]
  - Neutrophil count decreased [Recovered/Resolved]
  - Platelet count decreased [Recovered/Resolved]
